FAERS Safety Report 5145741-6 (Version None)
Quarter: 2006Q4

REPORT INFORMATION
  Report Type: 
  Country: None (occurrence: None)
  Receive Date: 20061102
  Receipt Date: 20060816
  Transmission Date: 20070319
  Serious: Yes (Other)
  Sender: FDA-Public Use
  Company Number: 2006127694

PATIENT
  Age: 57 Year
  Sex: Female
  Weight: 86 kg

DRUGS (7)
  1. NEURONTIN [Suspect]
     Indication: PAIN
     Dosage: 2400 MG (800 MG, 3 IN 1 D), ORAL
     Route: 048
     Dates: start: 20060721, end: 20060815
  2. LYRICA [Suspect]
     Indication: PAIN
     Dosage: 1200 MG (600 MG, 2 IN 1 D), ORAL
     Route: 048
     Dates: start: 20060815, end: 20060816
  3. XANAX [Concomitant]
  4. LEVOTHYROXINE SODIUM [Concomitant]
  5. COZAAR [Concomitant]
  6. LAMALINE (BELLADONNA EXTRACT, CAFFEINE, OPIUM TINCTURE, PARACETAMOL) [Concomitant]
  7. SPASFON (PHLOROGLUCINOL, TRIMETHYLPHLOROGLUCINOL) [Concomitant]

REACTIONS (10)
  - ASTHENIA [None]
  - DRY MOUTH [None]
  - DYSSTASIA [None]
  - GAIT DISTURBANCE [None]
  - HYPOTONIA [None]
  - NAUSEA [None]
  - PAIN [None]
  - VERTIGO [None]
  - VISUAL DISTURBANCE [None]
  - VOMITING [None]
